FAERS Safety Report 8831524 (Version 3)
Quarter: 2013Q2

REPORT INFORMATION
  Report Type: Report from Study
  Country: IT (occurrence: IT)
  Receive Date: 20121008
  Receipt Date: 20130611
  Transmission Date: 20140414
  Serious: Yes (Death, Hospitalization)
  Sender: FDA-Public Use
  Company Number: IT-VIIV HEALTHCARE LIMITED-B0835652A

PATIENT
  Age: 51 Year
  Sex: Male
  Weight: 59 kg

DRUGS (5)
  1. CELSENTRI [Suspect]
     Indication: HIV INFECTION
     Dosage: 1200MG TWICE PER DAY
     Route: 048
     Dates: start: 20071020, end: 20121104
  2. ATRIPLA [Concomitant]
     Indication: HIV INFECTION
     Dosage: 1TAB PER DAY
     Dates: start: 20101006
  3. PANTOPRAZOLE [Concomitant]
     Indication: ABDOMINAL PAIN UPPER
     Route: 048
     Dates: start: 20120627
  4. ORAMORPH [Concomitant]
     Indication: PAIN
     Route: 048
  5. BACTRIM [Concomitant]
     Route: 048

REACTIONS (1)
  - Oesophageal adenocarcinoma [Fatal]
